FAERS Safety Report 8772823 (Version 1)
Quarter: 2012Q4

REPORT INFORMATION
  Report Type: 
  Country: BR (occurrence: BR)
  Receive Date: 20120907
  Receipt Date: 20120907
  Transmission Date: 20130627
  Serious: Yes (Other)
  Sender: FDA-Public Use
  Company Number: BR-PFIZER INC-2012218558

PATIENT
  Age: 43 Year
  Sex: Female

DRUGS (1)
  1. LYRICA [Suspect]
     Indication: PAIN
     Dosage: 75 mg (one capsule), 1x/day
     Route: 048
     Dates: start: 20120904, end: 20120904

REACTIONS (5)
  - Dysstasia [Unknown]
  - Headache [Unknown]
  - Vomiting [Unknown]
  - Malaise [Unknown]
  - Feeling abnormal [Unknown]
